FAERS Safety Report 12851494 (Version 3)
Quarter: 2017Q1

REPORT INFORMATION
  Report Type: Spontaneous
  Country: US (occurrence: US)
  Receive Date: 20161016
  Receipt Date: 20170217
  Transmission Date: 20170428
  Serious: No
  Sender: FDA-Public Use
  Company Number: US-TAIHO ONCOLOGY INC-EU-2016-02384

PATIENT
  Sex: Male

DRUGS (24)
  1. PREDNISONE. [Concomitant]
     Active Substance: PREDNISONE
     Dosage: NI
  2. CLARITHROMYCIN. [Concomitant]
     Active Substance: CLARITHROMYCIN
     Dosage: NI
  3. TRAMADOL. [Concomitant]
     Active Substance: TRAMADOL
     Dosage: NI
  4. PROAIR HFA [Concomitant]
     Active Substance: ALBUTEROL SULFATE
     Dosage: NI
  5. PARACETAMOL/OXYCODONE HYDROCHLORIDE [Concomitant]
     Dosage: NI
  6. DRONABINOL. [Concomitant]
     Active Substance: DRONABINOL
     Dosage: NI
  7. WARFARIN [Concomitant]
     Active Substance: WARFARIN
     Dosage: NI
  8. CITALOPRAM [Concomitant]
     Active Substance: CITALOPRAM HYDROBROMIDE
     Dosage: NI
  9. LYRICA [Concomitant]
     Active Substance: PREGABALIN
     Dosage: NI
  10. LISINOPRIL. [Concomitant]
     Active Substance: LISINOPRIL
     Dosage: NI
  11. AMOXICILLIN. [Concomitant]
     Active Substance: AMOXICILLIN
     Dosage: NI
  12. ATROPINE SULFATE/DIPHENOXYLATE HYDROCHLORIDE [Concomitant]
     Dosage: NI
  13. METHYLPREDNISOLONE. [Concomitant]
     Active Substance: METHYLPREDNISOLONE
     Dosage: NI
  14. CEFDINIR. [Concomitant]
     Active Substance: CEFDINIR
     Dosage: NI
  15. LONSURF [Suspect]
     Active Substance: TIPIRACIL HYDROCHLORIDE\TRIFLURIDINE
     Indication: RECTAL CANCER
  16. AMLODIPINE [Concomitant]
     Active Substance: AMLODIPINE BESYLATE
     Dosage: NI
  17. CELEBREX [Concomitant]
     Active Substance: CELECOXIB
     Dosage: NI
  18. POTASSIUM GLUCONATE [Concomitant]
     Active Substance: POTASSIUM GLUCONATE
     Dosage: NI
  19. LEVOFLOXACIN. [Concomitant]
     Active Substance: LEVOFLOXACIN
     Dosage: NI
  20. GABAPENTIN. [Concomitant]
     Active Substance: GABAPENTIN
     Dosage: NI
  21. OXYCODONE [Concomitant]
     Active Substance: OXYCODONE
     Dosage: NI
  22. TAMSULOSIN [Concomitant]
     Active Substance: TAMSULOSIN
     Dosage: NI
  23. LONSURF [Suspect]
     Active Substance: TIPIRACIL HYDROCHLORIDE\TRIFLURIDINE
     Indication: COLON CANCER
     Route: 048
     Dates: start: 20160714, end: 2016
  24. FUROSEMIDE. [Concomitant]
     Active Substance: FUROSEMIDE
     Dosage: NI

REACTIONS (8)
  - Headache [Not Recovered/Not Resolved]
  - Back pain [Not Recovered/Not Resolved]
  - Dysgeusia [Not Recovered/Not Resolved]
  - Decreased appetite [Not Recovered/Not Resolved]
  - Fatigue [Not Recovered/Not Resolved]
  - Diarrhoea [Not Recovered/Not Resolved]
  - Abdominal pain [Not Recovered/Not Resolved]
  - Nausea [Not Recovered/Not Resolved]

NARRATIVE: CASE EVENT DATE: 2016
